FAERS Safety Report 19126543 (Version 1)
Quarter: 2021Q2

REPORT INFORMATION
  Report Type: Spontaneous
  Country: US (occurrence: US)
  Receive Date: 20210413
  Receipt Date: 20210413
  Transmission Date: 20210717
  Serious: No
  Sender: FDA-Public Use
  Company Number: None

PATIENT
  Age: 30 Year
  Weight: 134 kg

DRUGS (1)
  1. DOXEPIN (DOXEPIN 6MG TAB) [Suspect]
     Active Substance: DOXEPIN
     Indication: INSOMNIA
     Route: 048
     Dates: start: 20201109, end: 20210107

REACTIONS (1)
  - Dyspnoea [None]

NARRATIVE: CASE EVENT DATE: 20210107
